FAERS Safety Report 16596607 (Version 1)
Quarter: 2019Q3

REPORT INFORMATION
  Report Type: Spontaneous
  Country: CN (occurrence: CN)
  Receive Date: 20190719
  Receipt Date: 20190719
  Transmission Date: 20191004
  Serious: Yes (Other)
  Sender: FDA-Public Use
  Company Number: CN-ROCHE-2352891

PATIENT
  Age: 50 Year
  Sex: Female

DRUGS (11)
  1. VITAMIN B6 [Concomitant]
     Active Substance: PYRIDOXINE HYDROCHLORIDE
     Indication: PALMAR-PLANTAR ERYTHRODYSAESTHESIA SYNDROME
     Route: 048
  2. VINORELBINE BITARTRATE [Suspect]
     Active Substance: VINORELBINE TARTRATE
     Indication: BREAST CANCER
     Route: 065
     Dates: start: 20170221, end: 20171208
  3. HERCEPTIN [Suspect]
     Active Substance: TRASTUZUMAB
     Dosage: INITIAL DOSE 8MG/KG, THEN 6MG/KG
     Route: 042
     Dates: start: 20190326
  4. PERJETA [Suspect]
     Active Substance: PERTUZUMAB
     Indication: BREAST CANCER
     Dosage: INITIAL DOSE: 840MG ON DAY 1, THEN 420MG ON DAY 1
     Route: 065
     Dates: start: 20190326
  5. HERCEPTIN [Suspect]
     Active Substance: TRASTUZUMAB
     Route: 042
     Dates: end: 20150801
  6. PYROTINIB [Suspect]
     Active Substance: PYROTINIB
     Indication: BREAST CANCER
     Route: 048
     Dates: start: 20181005
  7. HERCEPTIN [Suspect]
     Active Substance: TRASTUZUMAB
     Dosage: INITIAL DOSE 500MG, THEN 380MG
     Route: 042
     Dates: start: 20170221, end: 20171201
  8. CAPECITABINE. [Suspect]
     Active Substance: CAPECITABINE
     Indication: BREAST CANCER
     Route: 048
     Dates: start: 20181005
  9. DOCETAXEL. [Suspect]
     Active Substance: DOCETAXEL
     Indication: BREAST CANCER
     Route: 065
     Dates: start: 20140822, end: 20141209
  10. PACLITAXEL ALBUMIN [Suspect]
     Active Substance: PACLITAXEL
     Indication: BREAST CANCER
     Route: 065
     Dates: start: 20190326
  11. HERCEPTIN [Suspect]
     Active Substance: TRASTUZUMAB
     Indication: BREAST CANCER
     Dosage: INITIAL DOSE 8MG/KG, THEN 6 MG/KG
     Route: 041
     Dates: start: 20140822, end: 20141209

REACTIONS (3)
  - Drug resistance [Unknown]
  - Bone marrow failure [Unknown]
  - Diarrhoea [Recovering/Resolving]

NARRATIVE: CASE EVENT DATE: 2017
